FAERS Safety Report 12216407 (Version 1)
Quarter: 2016Q1

REPORT INFORMATION
  Report Type: Spontaneous
  Country: US (occurrence: None)
  Receive Date: 20160328
  Receipt Date: 20160328
  Transmission Date: 20160526
  Serious: Yes (Life-Threatening)
  Sender: FDA-Public Use
  Company Number: None

PATIENT
  Age: 69 Year
  Sex: Male
  Weight: 83.6 kg

DRUGS (2)
  1. HYDROCHLOROTHIAZIDE/LISINOPRIL [Suspect]
     Active Substance: HYDROCHLOROTHIAZIDE\LISINOPRIL
     Indication: HYPERTENSION
     Route: 048
     Dates: start: 20100510, end: 20130603
  2. AMOXICILLIN. [Suspect]
     Active Substance: AMOXICILLIN
     Indication: STOMATITIS
     Route: 048
     Dates: start: 20130601, end: 20130603

REACTIONS (1)
  - Angioedema [None]

NARRATIVE: CASE EVENT DATE: 20130603
